FAERS Safety Report 6217025-6 (Version None)
Quarter: 2009Q2

REPORT INFORMATION
  Report Type: 
  Country: None (occurrence: None)
  Receive Date: 20090604
  Receipt Date: 20090520
  Transmission Date: 20091009
  Serious: Yes (Death, Hospitalization)
  Sender: FDA-Public Use
  Company Number: 2009001305

PATIENT
  Age: 63 Year
  Sex: Female

DRUGS (7)
  1. ERLOTINIB (ERLOTINIB) (TABLET) (ERLOTINIB) [Suspect]
     Indication: NON-SMALL CELL LUNG CANCER
     Dosage: 150 MG ORAL
     Route: 048
     Dates: start: 20090401, end: 20090403
  2. RO4858696 (INJECTION FOR INFUSION) [Suspect]
     Indication: NON-SMALL CELL LUNG CANCER
     Dosage: QW, INTRAVENOUS
     Route: 042
  3. TRAMADOL HYDROHLORIDE [Concomitant]
  4. METHADONE HCL [Concomitant]
  5. ENDONE (OXYCODONE HYDROCHLORIDE) [Concomitant]
  6. NEXIUM [Concomitant]
  7. LEXAPRO [Concomitant]

REACTIONS (4)
  - COUGH [None]
  - EMBOLISM [None]
  - INFECTION [None]
  - RESPIRATORY FAILURE [None]
